FAERS Safety Report 11091410 (Version 1)
Quarter: 2015Q2

REPORT INFORMATION
  Report Type: Spontaneous
  Country: DE (occurrence: DE)
  Receive Date: 20150505
  Receipt Date: 20150505
  Transmission Date: 20150821
  Serious: Yes (Disabling, Other)
  Sender: FDA-Public Use
  Company Number: GXKR2015DE001953

PATIENT
  Sex: Female
  Weight: 72 kg

DRUGS (4)
  1. RIVASTIGMIN HEXAL [Suspect]
     Active Substance: RIVASTIGMINE
     Indication: MEMORY IMPAIRMENT
     Dosage: 3 MG TWICE PER DAY
     Route: 048
     Dates: start: 2004
  2. EFEROX [Concomitant]
     Active Substance: LEVOTHYROXINE SODIUM
     Indication: THYROID DISORDER
     Dosage: 50 UG ONCE PER DAY
     Route: 048
     Dates: start: 1972
  3. ASPIRIN. [Concomitant]
     Active Substance: ASPIRIN
     Indication: PROPHYLAXIS
     Dosage: 100 MG, ONCE PER DAY
     Route: 048
     Dates: start: 2010
  4. AMLODIPINE [Concomitant]
     Active Substance: AMLODIPINE BESYLATE
     Indication: HYPERTENSION
     Dosage: 5 MG ONCE PER DAY
     Route: 048
     Dates: start: 2010

REACTIONS (3)
  - Product substitution issue [Not Recovered/Not Resolved]
  - Suicidal ideation [Not Recovered/Not Resolved]
  - Skin odour abnormal [Not Recovered/Not Resolved]
